FAERS Safety Report 19293234 (Version 1)
Quarter: 2021Q2

REPORT INFORMATION
  Report Type: Other
  Country: US (occurrence: US)
  Receive Date: 20210524
  Receipt Date: 20210524
  Transmission Date: 20210717
  Serious: Yes (Other)
  Sender: FDA-Public Use
  Company Number: US-ROCHE-2835234

PATIENT
  Age: 65 Year
  Sex: Male

DRUGS (22)
  1. FARXIGA [Concomitant]
     Active Substance: DAPAGLIFLOZIN PROPANEDIOL
     Route: 048
  2. BREO ELLIPTA [Concomitant]
     Active Substance: FLUTICASONE FUROATE\VILANTEROL TRIFENATATE
  3. LOSARTAN AND HYDROCHLOROTHIAZIDE [Concomitant]
     Active Substance: HYDROCHLOROTHIAZIDE\LOSARTAN POTASSIUM
  4. ARISTOCORT [Concomitant]
     Active Substance: TRIAMCINOLONE DIACETATE
  5. ZOCOR [Concomitant]
     Active Substance: SIMVASTATIN
     Route: 048
  6. XYZAL [Concomitant]
     Active Substance: LEVOCETIRIZINE DIHYDROCHLORIDE
     Route: 048
  7. NASONEX [Concomitant]
     Active Substance: MOMETASONE FUROATE
  8. VITAMIN D3 [Concomitant]
     Active Substance: CHOLECALCIFEROL
  9. XOLAIR [Suspect]
     Active Substance: OMALIZUMAB
  10. DUONEB [Concomitant]
     Active Substance: ALBUTEROL SULFATE\IPRATROPIUM BROMIDE
  11. AUVI?Q [Concomitant]
     Active Substance: EPINEPHRINE
  12. OXYCODONE AND ACETAMINOPHEN [Concomitant]
     Active Substance: ACETAMINOPHEN\OXYCODONE HYDROCHLORIDE
  13. AMARYL [Concomitant]
     Active Substance: GLIMEPIRIDE
     Route: 048
  14. TYLENOL [Concomitant]
     Active Substance: ACETAMINOPHEN
  15. XOLAIR [Suspect]
     Active Substance: OMALIZUMAB
     Indication: ASTHMA
     Dosage: INJECT 300MG SUBCUTANEOUSLY EVERY 28 DAY(S)
     Route: 058
  16. ESOMEPRAZOLE. [Concomitant]
     Active Substance: ESOMEPRAZOLE MAGNESIUM
     Route: 048
  17. ALBUTEROL. [Concomitant]
     Active Substance: ALBUTEROL
  18. MONTELUCAST [Concomitant]
     Active Substance: MONTELUKAST SODIUM
  19. MUCINEX [Concomitant]
     Active Substance: GUAIFENESIN
  20. XOLAIR [Suspect]
     Active Substance: OMALIZUMAB
  21. NAPROXEN. [Concomitant]
     Active Substance: NAPROXEN
  22. OMEGA 3 FISH OILS [Concomitant]
     Active Substance: OMEGA-3 FATTY ACIDS

REACTIONS (1)
  - Myocardial infarction [Unknown]

NARRATIVE: CASE EVENT DATE: 20210419
